FAERS Safety Report 5205728-1 (Version None)
Quarter: 2007Q1

REPORT INFORMATION
  Report Type: 
  Country: None (occurrence: None)
  Receive Date: 20070111
  Receipt Date: 20070103
  Transmission Date: 20070707
  Serious: Yes (Hospitalization, Other)
  Sender: FDA-Public Use
  Company Number: FR-JNJFOC-20070100594

PATIENT
  Age: 31 Year
  Sex: Male

DRUGS (5)
  1. INFLIXIMAB [Suspect]
     Route: 042
  2. INFLIXIMAB [Suspect]
     Indication: COLITIS ULCERATIVE
     Route: 042
  3. AZATHIOPRINE [Suspect]
     Indication: COLITIS ULCERATIVE
  4. MERCAPTOPURINE [Suspect]
     Indication: COLITIS ULCERATIVE
  5. PREDNISOLONE [Concomitant]
     Indication: COLITIS ULCERATIVE

REACTIONS (6)
  - COLITIS ULCERATIVE [None]
  - HEPATITIS CHOLESTATIC [None]
  - INFUSION RELATED REACTION [None]
  - MENINGITIS ASEPTIC [None]
  - NAUSEA [None]
  - URINARY RETENTION [None]
